FAERS Safety Report 8847936 (Version 1)
Quarter: 2012Q4

REPORT INFORMATION
  Report Type: 
  Country: US (occurrence: US)
  Receive Date: 20121018
  Receipt Date: 20121018
  Transmission Date: 20130627
  Serious: Yes (Disabling)
  Sender: FDA-Public Use
  Company Number: US-TEVA-364911USA

PATIENT
  Age: 59 Year
  Sex: Female
  Weight: 57.07 kg

DRUGS (3)
  1. WARFARIN [Suspect]
     Indication: PULMONARY EMBOLISM
     Dosage: daily, sun to thursday
     Route: 048
     Dates: start: 20110826
  2. WARFARIN [Interacting]
     Dosage: daily, fri to sat
     Route: 048
     Dates: start: 20120826
  3. CIPROFLOXACIN HYDROCHLORIDE [Interacting]
     Indication: URINARY TRACT INFECTION
     Dosage: one tablet two times daily
     Route: 048
     Dates: start: 20120912, end: 20120922

REACTIONS (9)
  - Immobile [Recovering/Resolving]
  - Contusion [Recovering/Resolving]
  - Erythema [Recovering/Resolving]
  - Feeling hot [Recovering/Resolving]
  - Inflammation [Recovering/Resolving]
  - Swelling [Recovering/Resolving]
  - Tendon pain [Recovering/Resolving]
  - Drug interaction [Recovering/Resolving]
  - Arthralgia [Recovering/Resolving]
